FAERS Safety Report 8022625-7 (Version None)
Quarter: 2012Q1

REPORT INFORMATION
  Report Type: 
  Country: None (occurrence: None)
  Receive Date: 20120104
  Receipt Date: 20111227
  Transmission Date: 20120608
  Serious: Yes (Other)
  Sender: FDA-Public Use
  Company Number: JP-GLAXOSMITHKLINE-B0771992A

PATIENT
  Sex: Female

DRUGS (8)
  1. MAGNESIUM OXIDE [Concomitant]
     Route: 048
  2. LUVOX [Concomitant]
     Route: 048
  3. AMOXAPINE [Concomitant]
     Route: 048
  4. MILNACIPRAN HYDROCHLORIDE [Concomitant]
     Route: 048
  5. SULPIRIDE [Concomitant]
     Route: 048
  6. PAXIL [Suspect]
     Indication: DEPRESSION
     Route: 048
  7. U PAN [Concomitant]
     Route: 048
  8. UNKNOWN DRUG [Concomitant]
     Route: 048

REACTIONS (13)
  - HEADACHE [None]
  - FEELING HOT [None]
  - WEIGHT DECREASED [None]
  - AMENORRHOEA [None]
  - DEPRESSION [None]
  - CONFUSIONAL STATE [None]
  - DEPERSONALISATION [None]
  - CONSTIPATION [None]
  - DYSCALCULIA [None]
  - AGRAPHIA [None]
  - DECREASED APPETITE [None]
  - DYSLEXIA [None]
  - MOOD ALTERED [None]
